FAERS Safety Report 4759398-7 (Version None)
Quarter: 2005Q3

REPORT INFORMATION
  Report Type: 
  Country: None (occurrence: None)
  Receive Date: 20050831
  Receipt Date: 20050818
  Transmission Date: 20060218
  Serious: Yes (Other)
  Sender: FDA-Public Use
  Company Number: 167531

PATIENT
  Age: 27 Year
  Sex: Male

DRUGS (1)
  1. AVONEX [Suspect]
     Indication: MULTIPLE SCLEROSIS
     Dosage: 30 UG;QW;IM
     Route: 030
     Dates: start: 19980101

REACTIONS (4)
  - BRAIN NEOPLASM [None]
  - EMPTY SELLA SYNDROME [None]
  - HYPOPITUITARISM [None]
  - PITUITARY TUMOUR BENIGN [None]
